FAERS Safety Report 5258434-1 (Version None)
Quarter: 2007Q1

REPORT INFORMATION
  Report Type: 
  Country: None (occurrence: None)
  Receive Date: 20070308
  Receipt Date: 20070223
  Transmission Date: 20070707
  Serious: Yes (Hospitalization)
  Sender: FDA-Public Use
  Company Number: AU-AMGEN-US212439

PATIENT
  Sex: Male

DRUGS (2)
  1. CINACALCET [Suspect]
     Indication: HYPERPARATHYROIDISM SECONDARY
     Route: 048
     Dates: start: 20061124
  2. ARANESP [Concomitant]
     Indication: DIALYSIS
     Route: 042
     Dates: start: 20050318

REACTIONS (2)
  - HEART RATE DECREASED [None]
  - HYPOTENSION [None]
